FAERS Safety Report 16793824 (Version 13)
Quarter: 2021Q4

REPORT INFORMATION
  Report Type: Report from Study
  Country: CN (occurrence: CN)
  Receive Date: 20190911
  Receipt Date: 20211029
  Transmission Date: 20220303
  Serious: Yes (Hospitalization)
  Sender: FDA-Public Use
  Company Number: CN-ROCHE-2397640

PATIENT
  Age: 53 Year
  Sex: Female
  Weight: 66 kg

DRUGS (63)
  1. ADO-TRASTUZUMAB EMTANSINE [Suspect]
     Active Substance: ADO-TRASTUZUMAB EMTANSINE
     Indication: Breast cancer metastatic
     Dosage: DATE OF MOST RECENT DOSE OF TRASTUZUMAB EMTANSINE ADMINISTERED PRIOR TO ONSET OF PULMONARY ARTERIAL
     Route: 042
     Dates: start: 20171019
  2. PHOSPHOLIPID [Concomitant]
     Active Substance: PHOSPHOLIPID
     Indication: Hepatic function abnormal
     Dates: start: 20180222, end: 20200412
  3. PHOSPHOLIPID [Concomitant]
     Active Substance: PHOSPHOLIPID
     Dates: start: 20190708, end: 20190708
  4. PHOSPHOLIPID [Concomitant]
     Active Substance: PHOSPHOLIPID
     Dates: start: 20190928, end: 20190928
  5. PHOSPHOLIPID [Concomitant]
     Active Substance: PHOSPHOLIPID
     Dates: start: 20210130
  6. ZOMETA [Concomitant]
     Active Substance: ZOLEDRONIC ACID
     Dates: start: 20170927
  7. BICYCLOL [Concomitant]
     Active Substance: BICYCLOL
     Indication: Hepatic function abnormal
     Dates: start: 20180921, end: 20190809
  8. CALCIUM CARBONATE;VITAMIN D3 [Concomitant]
     Dates: start: 20190601
  9. COMPOUND GLYCYRRHIZIN (UNK INGREDIENTS) [Concomitant]
     Indication: Hepatic function abnormal
     Dates: start: 20190716, end: 20190718
  10. COMPOUND GLYCYRRHIZIN (UNK INGREDIENTS) [Concomitant]
     Indication: Blood bilirubin increased
     Dates: start: 20190807, end: 20190807
  11. COMPOUND GLYCYRRHIZIN (UNK INGREDIENTS) [Concomitant]
     Dates: start: 20190918, end: 20190918
  12. COMPOUND GLYCYRRHIZIN (UNK INGREDIENTS) [Concomitant]
     Dates: start: 20191009, end: 20191009
  13. COMPOUND GLYCYRRHIZIN (UNK INGREDIENTS) [Concomitant]
     Dates: start: 20191122, end: 20191123
  14. COMPOUND GLYCYRRHIZIN (UNK INGREDIENTS) [Concomitant]
     Dates: start: 20191212, end: 20191212
  15. COMPOUND GLYCYRRHIZIN (UNK INGREDIENTS) [Concomitant]
     Dates: start: 20200101, end: 20200102
  16. COMPOUND GLYCYRRHIZIN (UNK INGREDIENTS) [Concomitant]
     Dates: start: 20191030, end: 20191030
  17. COMPOUND GLYCYRRHIZIN (UNK INGREDIENTS) [Concomitant]
     Dates: start: 20190829, end: 20190829
  18. COMPOUND GLYCYRRHIZIN (UNK INGREDIENTS) [Concomitant]
     Dates: start: 20201217, end: 20201217
  19. COMPOUND GLYCYRRHIZIN (UNK INGREDIENTS) [Concomitant]
     Dates: start: 20200904
  20. COMPOUND GLYCYRRHIZIN (UNK INGREDIENTS) [Concomitant]
     Dates: start: 20190810, end: 20200412
  21. COMPOUND GLYCYRRHIZIN (UNK INGREDIENTS) [Concomitant]
     Dates: start: 20210430, end: 20210430
  22. GLUTATHIONE [Concomitant]
     Active Substance: GLUTATHIONE
     Indication: Hepatic function abnormal
     Dates: start: 20190716, end: 20190718
  23. GLUTATHIONE [Concomitant]
     Active Substance: GLUTATHIONE
     Dates: start: 20190807, end: 20190807
  24. GLUTATHIONE [Concomitant]
     Active Substance: GLUTATHIONE
     Dates: start: 20190918, end: 20190918
  25. GLUTATHIONE [Concomitant]
     Active Substance: GLUTATHIONE
     Dates: start: 20191009, end: 20191009
  26. GLUTATHIONE [Concomitant]
     Active Substance: GLUTATHIONE
     Dates: start: 20191122, end: 20191123
  27. GLUTATHIONE [Concomitant]
     Active Substance: GLUTATHIONE
     Dates: start: 20191212, end: 20191212
  28. GLUTATHIONE [Concomitant]
     Active Substance: GLUTATHIONE
     Dates: start: 20200101, end: 20200102
  29. GLUTATHIONE [Concomitant]
     Active Substance: GLUTATHIONE
     Dates: start: 20191030, end: 20191030
  30. GLUTATHIONE [Concomitant]
     Active Substance: GLUTATHIONE
     Dates: start: 20190829, end: 20190829
  31. CEFUROXIME SAMMY (UNK INGREDIENTS) [Concomitant]
  32. POTASSIUM CHLORIDE [Concomitant]
     Active Substance: POTASSIUM CHLORIDE
  33. POTASSIUM CHLORIDE [Concomitant]
     Active Substance: POTASSIUM CHLORIDE
     Dates: start: 20190725, end: 20190731
  34. POTASSIUM CHLORIDE [Concomitant]
     Active Substance: POTASSIUM CHLORIDE
     Dates: start: 202002, end: 202002
  35. SHENG XUE XIAO BAN [Concomitant]
     Indication: Thrombocytopenia
     Dates: start: 20190807, end: 20190826
  36. SHENG XUE XIAO BAN [Concomitant]
     Dates: start: 20190718, end: 20190806
  37. SHENG XUE XIAO BAN [Concomitant]
     Dates: start: 20190827
  38. FUROSEMIDE [Concomitant]
     Active Substance: FUROSEMIDE
     Dates: start: 20190725, end: 20190731
  39. FUROSEMIDE [Concomitant]
     Active Substance: FUROSEMIDE
     Dates: start: 20200912, end: 20200920
  40. TORSEMIDE [Concomitant]
     Active Substance: TORSEMIDE
     Dates: start: 20190725, end: 20190731
  41. OCTREOTIDE ACETATE [Concomitant]
     Active Substance: OCTREOTIDE ACETATE
     Indication: Lower gastrointestinal haemorrhage
     Dates: start: 202002, end: 202002
  42. SOMATOSTATIN [Concomitant]
     Active Substance: SOMATOSTATIN
     Indication: Haemostasis
     Dates: start: 202002, end: 202002
  43. LEUCOGEN [Concomitant]
     Active Substance: LEUCOGEN
     Indication: Anaemia
     Dates: start: 202002, end: 202002
  44. LEUCOGEN [Concomitant]
     Active Substance: LEUCOGEN
     Indication: Platelet count decreased
     Dates: start: 20200211, end: 20200226
  45. PANTOPRAZOLE SODIUM [Concomitant]
     Active Substance: PANTOPRAZOLE SODIUM
     Dates: start: 202002, end: 202002
  46. VITAMIN C [Concomitant]
     Active Substance: ASCORBIC ACID
     Dates: start: 202002, end: 202002
  47. VITAMIN B6 [Concomitant]
     Active Substance: PYRIDOXINE HYDROCHLORIDE
     Dates: start: 202002, end: 202002
  48. CHLORPHENIRAMINE MALEATE [Concomitant]
     Active Substance: CHLORPHENIRAMINE MALEATE
     Dates: start: 202002, end: 202002
  49. ESTAZOLAM [Concomitant]
     Active Substance: ESTAZOLAM
     Dates: start: 202002, end: 202002
  50. ESTAZOLAM [Concomitant]
     Active Substance: ESTAZOLAM
     Dates: start: 20200813, end: 20200813
  51. ESTAZOLAM [Concomitant]
     Active Substance: ESTAZOLAM
     Dates: start: 20200904, end: 20200904
  52. RECOMBINANT HUMAN THROMBOPOIETIN (UNK INGREDIENTS) [Concomitant]
     Dates: start: 20200402, end: 20200406
  53. URSODIOL [Concomitant]
     Active Substance: URSODIOL
     Indication: Blood bilirubin increased
     Dates: start: 20200904
  54. HYDROCHLOROTHIAZIDE [Concomitant]
     Active Substance: HYDROCHLOROTHIAZIDE
     Indication: Swelling
     Dates: start: 20200904, end: 20200911
  55. SPIRONOLACTONE [Concomitant]
     Active Substance: SPIRONOLACTONE
     Indication: Oedema
     Dates: start: 20200904, end: 20200911
  56. RECOMBINANT HUMAN GRANULOCYTE COLONY STIMULATING FACTOR (UNK INGREDIEN [Concomitant]
     Indication: Neutropenia
     Dates: start: 20200701, end: 20200703
  57. RECOMBINANT HUMAN GRANULOCYTE COLONY STIMULATING FACTOR (UNK INGREDIEN [Concomitant]
     Indication: Neutrophil count decreased
     Dates: start: 20200723, end: 20200723
  58. RECOMBINANT HUMAN GRANULOCYTE COLONY STIMULATING FACTOR (UNK INGREDIEN [Concomitant]
     Indication: White blood cell count decreased
     Dates: start: 20210312, end: 20210312
  59. RECOMBINANT HUMAN GRANULOCYTE COLONY STIMULATING FACTOR (UNK INGREDIEN [Concomitant]
     Dates: start: 20210402, end: 20210402
  60. RECOMBINANT HUMAN GRANULOCYTE COLONY STIMULATING FACTOR (UNK INGREDIEN [Concomitant]
     Dates: start: 20210424, end: 20210424
  61. RECOMBINANT HUMAN GRANULOCYTE COLONY STIMULATING FACTOR (UNK INGREDIEN [Concomitant]
     Dates: start: 20210514, end: 20210514
  62. RECOMBINANT HUMAN GRANULOCYTE COLONY STIMULATING FACTOR (UNK INGREDIEN [Concomitant]
     Dates: start: 20210606, end: 20210606
  63. RECOMBINANT HUMAN GRANULOCYTE COLONY STIMULATING FACTOR (UNK INGREDIEN [Concomitant]
     Dates: start: 20210628, end: 20210628

REACTIONS (1)
  - Pulmonary arterial hypertension [Recovering/Resolving]

NARRATIVE: CASE EVENT DATE: 20190712
